FAERS Safety Report 6650078-X (Version None)
Quarter: 2010Q1

REPORT INFORMATION
  Report Type: 
  Country: None (occurrence: None)
  Receive Date: 20100322
  Receipt Date: 20100219
  Transmission Date: 20100710
  Serious: Yes (Death, Life-Threatening, Hospitalization, Other)
  Sender: FDA-Public Use
  Company Number: FR-2010-0128

PATIENT
  Age: 6 Year
  Sex: Male
  Weight: 24 kg

DRUGS (15)
  1. NAVELBINE [Suspect]
     Indication: HODGKIN'S DISEASE
     Dosage: 135 MG QD IV
     Route: 042
     Dates: start: 20100114, end: 20100114
  2. NAVELBINE [Suspect]
     Indication: HODGKIN'S DISEASE
     Dosage: 135 MG QD IV
     Route: 042
     Dates: start: 20100118, end: 20100118
  3. IFOSFAMIDE [Concomitant]
  4. MITOGUAZONE [Concomitant]
  5. ETOPOSIDE [Concomitant]
  6. PARACETAMOL [Concomitant]
  7. NALBUPHINE [Concomitant]
  8. PHLOROGLUCINOL [Concomitant]
  9. SPASFON [Concomitant]
  10. METHYLPREDNISOLONE [Concomitant]
  11. ONDANSETRON [Concomitant]
  12. ALIZAPRIDE [Concomitant]
  13. HYDROXYZINE [Concomitant]
  14. MESNA [Concomitant]
  15. OMEPRAZOLE [Concomitant]

REACTIONS (22)
  - ACUTE RESPIRATORY DISTRESS SYNDROME [None]
  - CANDIDIASIS [None]
  - CONVULSION [None]
  - CYANOSIS [None]
  - DRUG ADMINISTRATION ERROR [None]
  - EPILEPSY [None]
  - FEBRILE BONE MARROW APLASIA [None]
  - FLATULENCE [None]
  - HAEMATURIA [None]
  - HYPERBILIRUBINAEMIA [None]
  - HYPOTENSION [None]
  - ILEUS [None]
  - INAPPROPRIATE ANTIDIURETIC HORMONE SECRETION [None]
  - JAUNDICE [None]
  - MUCOSAL INFLAMMATION [None]
  - NERVOUS SYSTEM DISORDER [None]
  - NEUROTOXICITY [None]
  - OVERDOSE [None]
  - PULMONARY HYPERTENSION [None]
  - RIGHT VENTRICULAR DYSFUNCTION [None]
  - SEPSIS [None]
  - TACHYCARDIA [None]
